FAERS Safety Report 4422830-2 (Version None)
Quarter: 2004Q3

REPORT INFORMATION
  Report Type: 
  Country: None (occurrence: None)
  Receive Date: 20040805
  Receipt Date: 20040722
  Transmission Date: 20050211
  Serious: Yes (Death, Hospitalization)
  Sender: FDA-Public Use
  Company Number: MC200400123

PATIENT
  Age: 80 Year
  Sex: Male

DRUGS (3)
  1. ANGIOMAX [Suspect]
     Route: 013
  2. ACETYLSALICYLIC ACID SRT [Concomitant]
  3. PLAVIX [Concomitant]

REACTIONS (7)
  - ACUTE MYOCARDIAL INFARCTION [None]
  - CARDIAC PROCEDURE COMPLICATION [None]
  - HYPOTENSION [None]
  - MYOCARDIAL RUPTURE [None]
  - POST PROCEDURAL COMPLICATION [None]
  - STENT OCCLUSION [None]
  - VENTRICULAR TACHYCARDIA [None]
